FAERS Safety Report 6807901-5 (Version None)
Quarter: 2010Q2

REPORT INFORMATION
  Report Type: 
  Country: None (occurrence: None)
  Receive Date: 20100629
  Receipt Date: 20090318
  Transmission Date: 20101027
  Serious: No
  Sender: FDA-Public Use
  Company Number: US-PFIZER INC-2008161048

PATIENT
  Sex: Female
  Weight: 78.9 kg

DRUGS (7)
  1. REVATIO [Suspect]
     Indication: PULMONARY HYPERTENSION
     Dosage: 20 MG, 3X/DAY
     Route: 048
     Dates: start: 20080101
  2. ALLEGRA [Concomitant]
     Dosage: UNK
  3. LANOXIN [Concomitant]
     Dosage: 0.125 MG, 1X/DAY
  4. FUROSEMIDE [Concomitant]
     Dosage: 10MG IN THE MORNING AND 10MG AT 1PM
  5. POTASSIUM [Concomitant]
     Dosage: 2 TABLETS AT NIGHT
  6. VITAMINS [Concomitant]
     Dosage: UNK
  7. VITAMIN C [Concomitant]
     Dosage: UNK

REACTIONS (3)
  - HEADACHE [None]
  - HYPOAESTHESIA [None]
  - MENORRHAGIA [None]
